FAERS Safety Report 11362767 (Version 1)
Quarter: 2015Q3

REPORT INFORMATION
  Report Type: Report from Study
  Country: FR (occurrence: FR)
  Receive Date: 20150810
  Receipt Date: 20150810
  Transmission Date: 20151125
  Serious: Yes (Other)
  Sender: FDA-Public Use
  Company Number: FR-JAZZ-JPI-P-001004

PATIENT
  Age: 14 Year
  Sex: Male
  Weight: 60 kg

DRUGS (18)
  1. XYREM [Suspect]
     Active Substance: SODIUM OXYBATE
     Indication: CATAPLEXY
     Dosage: 1 G, BID
     Route: 048
     Dates: start: 20070403, end: 20070405
  2. XYREM [Suspect]
     Active Substance: SODIUM OXYBATE
     Dosage: 2 G, QD
     Route: 048
     Dates: start: 20070511, end: 20070511
  3. XYREM [Suspect]
     Active Substance: SODIUM OXYBATE
     Dosage: UNK UNK, BID
     Route: 048
     Dates: start: 20110120
  4. MODAFINIL. [Concomitant]
     Active Substance: MODAFINIL
     Indication: CATAPLEXY
     Route: 048
     Dates: start: 20061005
  5. XYREM [Suspect]
     Active Substance: SODIUM OXYBATE
     Dosage: 2 G, BID
     Route: 048
     Dates: start: 20070406, end: 20070506
  6. XYREM [Suspect]
     Active Substance: SODIUM OXYBATE
     Dosage: 2 G, BID
     Route: 048
     Dates: start: 20070508, end: 20070510
  7. XYREM [Suspect]
     Active Substance: SODIUM OXYBATE
     Dosage: 2 G, QD
     Route: 048
     Dates: start: 20070519, end: 20070519
  8. XYREM [Suspect]
     Active Substance: SODIUM OXYBATE
     Dosage: 2 G, QD
     Route: 048
     Dates: start: 20070616, end: 20070616
  9. AZITHROMYCIN [Concomitant]
     Active Substance: AZITHROMYCIN ANHYDROUS
     Indication: PRODUCT USED FOR UNKNOWN INDICATION
  10. XYREM [Suspect]
     Active Substance: SODIUM OXYBATE
     Dosage: 2 G, BID
     Route: 048
     Dates: start: 20070512, end: 20070518
  11. XYREM [Suspect]
     Active Substance: SODIUM OXYBATE
     Dosage: 2 G, BID
     Route: 048
     Dates: start: 20070520, end: 20150615
  12. XYREM [Suspect]
     Active Substance: SODIUM OXYBATE
     Dosage: 4 G, BID
     Route: 048
  13. XYREM [Suspect]
     Active Substance: SODIUM OXYBATE
     Dosage: 3 G, QD
     Route: 048
     Dates: start: 20070722, end: 20070722
  14. XYREM [Suspect]
     Active Substance: SODIUM OXYBATE
     Dosage: 3 G, BID
     Route: 048
     Dates: start: 20070723
  15. XYREM [Suspect]
     Active Substance: SODIUM OXYBATE
     Dosage: UNK UNKNOWN, UNK
     Route: 048
     Dates: start: 20070617, end: 20070628
  16. XYREM [Suspect]
     Active Substance: SODIUM OXYBATE
     Dosage: UNK UNK, QD
     Route: 048
     Dates: start: 20070629, end: 20070721
  17. XYREM [Suspect]
     Active Substance: SODIUM OXYBATE
     Dosage: 2 G, QD
     Route: 048
     Dates: start: 20070507, end: 20070507
  18. MODAFINIL. [Concomitant]
     Active Substance: MODAFINIL
     Indication: NARCOLEPSY

REACTIONS (10)
  - Diarrhoea [Unknown]
  - Headache [Unknown]
  - Vomiting [Unknown]
  - Cataplexy [Recovered/Resolved]
  - Somnolence [Unknown]
  - Drug dose omission [Unknown]
  - Aggression [Not Recovered/Not Resolved]
  - Insomnia [Unknown]
  - Dizziness [Recovered/Resolved]
  - Loose associations [Recovered/Resolved]

NARRATIVE: CASE EVENT DATE: 20070101
